FAERS Safety Report 19892604 (Version 4)
Quarter: 2022Q2

REPORT INFORMATION
  Report Type: Report from Study
  Country: US (occurrence: US)
  Receive Date: 20210928
  Receipt Date: 20220613
  Transmission Date: 20220721
  Serious: No
  Sender: FDA-Public Use
  Company Number: NVSC2021US219445

PATIENT
  Sex: Female
  Weight: 112.17 kg

DRUGS (5)
  1. TREPROSTINIL [Suspect]
     Active Substance: TREPROSTINIL
     Indication: Pulmonary arterial hypertension
     Dosage: 36 NG/KG/MIN(CONTINUOUS)
     Route: 058
     Dates: start: 20210630
  2. TREPROSTINIL [Suspect]
     Active Substance: TREPROSTINIL
     Dosage: 40 NG/KG/MIN(CONTINUOUS)
     Route: 058
     Dates: start: 20210630
  3. TREPROSTINIL [Suspect]
     Active Substance: TREPROSTINIL
     Dosage: 40 NG/KG/MIN (CONTINOUS)
     Route: 065
     Dates: start: 20210630
  4. OPSUMIT [Concomitant]
     Active Substance: MACITENTAN
     Indication: Product used for unknown indication
     Dosage: UNK
     Route: 065
  5. SILDENAFIL CITRATE [Concomitant]
     Active Substance: SILDENAFIL CITRATE
     Indication: Product used for unknown indication
     Dosage: UNK
     Route: 065

REACTIONS (9)
  - Urinary tract infection [Unknown]
  - Myalgia [Unknown]
  - Musculoskeletal pain [Unknown]
  - Pollakiuria [Unknown]
  - Abdominal pain lower [Unknown]
  - Vomiting [Unknown]
  - Illness [Unknown]
  - Arthralgia [Unknown]
  - Intercepted product administration error [Unknown]
